FAERS Safety Report 18164267 (Version 1)
Quarter: 2020Q3

REPORT INFORMATION
  Report Type: Spontaneous
  Country: DE (occurrence: DE)
  Receive Date: 20200818
  Receipt Date: 20200818
  Transmission Date: 20201103
  Serious: Yes (Hospitalization, Other)
  Sender: FDA-Public Use
  Company Number: DE-MYLANLABS-2020M1070946

PATIENT
  Age: 74 Year
  Sex: Female
  Weight: 64 kg

DRUGS (10)
  1. NIFEDIPIN [Concomitant]
     Active Substance: NIFEDIPINE
     Dosage: 5 MILLIGRAM, PRN (5 MG, BEI BEDARF)
  2. METOPROLOL. [Concomitant]
     Active Substance: METOPROLOL
     Dosage: 47.5 MILLIGRAM, BID (95 MG, 0.5?0?0.5?0)
  3. SIMVASTATIN. [Suspect]
     Active Substance: SIMVASTATIN
     Indication: PRODUCT USED FOR UNKNOWN INDICATION
     Dosage: 20 MG, QD (40 MG, 0?0?0.5?0)
  4. LEVOTHYROXINE SODIUM. [Concomitant]
     Active Substance: LEVOTHYROXINE SODIUM
     Dosage: 100 MICROGRAM, QD (100 ?G, 1?0?0?0)
  5. ACETYLSALICYLIC ACID [Concomitant]
     Active Substance: ASPIRIN
     Dosage: 100 MG, QD (100 MG, 1?0?0?0)
  6. SIFROL [Concomitant]
     Active Substance: PRAMIPEXOLE
     Dosage: 0.52 MILLIGRAM, QD (0.52 MG, 1?0?0?0)
  7. STALEVO [Concomitant]
     Active Substance: CARBIDOPA\ENTACAPONE\LEVODOPA
     Dosage: 1 DOSAGE FORM, Q8H (NK MG, 1?1?1?0)
  8. AZILECT [Concomitant]
     Active Substance: RASAGILINE MESYLATE
     Dosage: 1 MG, QD (1 MG, 1?0?0?0)
  9. COSOPT [Concomitant]
     Active Substance: DORZOLAMIDE HYDROCHLORIDE\TIMOLOL MALEATE
     Dosage: 2 MILLIGRAM, BID (NK MG, 2?0?2?0)
  10. IBUPROFEN. [Concomitant]
     Active Substance: IBUPROFEN
     Dosage: 600 MILLIGRAM, Q8H (600 MG, 1?1?1?0)

REACTIONS (6)
  - Diabetes mellitus [Unknown]
  - Condition aggravated [Unknown]
  - Musculoskeletal pain [Unknown]
  - Paraesthesia [Unknown]
  - General physical health deterioration [Unknown]
  - Hyperglycaemia [Unknown]
